FAERS Safety Report 8623076-4 (Version None)
Quarter: 2012Q3

REPORT INFORMATION
  Report Type: 
  Country: None (occurrence: None)
  Receive Date: 20120827
  Receipt Date: 20120820
  Transmission Date: 20120928
  Serious: Yes (Other)
  Sender: FDA-Public Use
  Company Number: US-JNJFOC-20120610618

PATIENT
  Sex: Male

DRUGS (9)
  1. REMICADE [Suspect]
     Indication: COLITIS ULCERATIVE
     Dosage: 4-5 INFUSIONS
     Route: 042
  2. REMICADE [Suspect]
     Route: 042
     Dates: start: 20111101
  3. STEROIDS NOS [Suspect]
     Indication: PRODUCT USED FOR UNKNOWN INDICATION
     Route: 065
  4. REMICADE [Suspect]
     Route: 042
  5. APRISO [Concomitant]
     Indication: COLITIS ULCERATIVE
     Route: 065
     Dates: start: 20111101
  6. PREDNISONE TAB [Concomitant]
     Route: 065
     Dates: start: 20120201
  7. SOLU-MEDROL [Concomitant]
     Indication: PREMEDICATION
     Route: 042
     Dates: start: 20120526
  8. IMURAN [Concomitant]
     Route: 065
  9. IMURAN [Concomitant]
     Indication: COLITIS ULCERATIVE
     Route: 065
     Dates: start: 20120301

REACTIONS (2)
  - DENTAL CARIES [None]
  - SWELLING FACE [None]
